FAERS Safety Report 6565854-1 (Version None)
Quarter: 2010Q1

REPORT INFORMATION
  Report Type: 
  Country: None (occurrence: None)
  Receive Date: 20100126
  Receipt Date: 20100111
  Transmission Date: 20100710
  Serious: Yes (Death)
  Sender: FDA-Public Use
  Company Number: 004708

PATIENT
  Age: 37 Year
  Sex: Female

DRUGS (6)
  1. OMEPRAZOLE [Suspect]
     Dosage: ORAL
     Route: 048
  2. BUPROPION [Suspect]
     Dosage: ORAL
     Route: 048
  3. BUSPIRONE HCL [Suspect]
     Dosage: ORAL
     Route: 048
  4. ETHANOL [Suspect]
     Dosage: ORAL
     Route: 048
  5. IRON [Suspect]
     Dosage: ORAL
     Route: 048
  6. DULOXETINE [Suspect]
     Dosage: ORAL
     Route: 048

REACTIONS (1)
  - COMPLETED SUICIDE [None]
